FAERS Safety Report 7515235-9 (Version None)
Quarter: 2011Q2

REPORT INFORMATION
  Report Type: 
  Country: None (occurrence: None)
  Receive Date: 20110601
  Receipt Date: 20100609
  Transmission Date: 20111010
  Serious: No
  Sender: FDA-Public Use
  Company Number: US-PFIZER INC-2010073092

PATIENT
  Sex: Female

DRUGS (4)
  1. CHANTIX [Suspect]
     Indication: SMOKING CESSATION THERAPY
     Dosage: 0.5 MG, 1X/DAY
     Route: 048
     Dates: start: 20100531
  2. ACTONEL [Concomitant]
     Dosage: UNKNOWN DOSE, ONCE A WEEK
  3. ANASTROZOLE [Concomitant]
     Indication: BREAST CANCER
     Dosage: UNK
  4. PROTONIX [Concomitant]
     Indication: HYPERCHLORHYDRIA
     Dosage: UNK

REACTIONS (10)
  - NAUSEA [None]
  - INSOMNIA [None]
  - MALAISE [None]
  - FRUSTRATION [None]
  - CONSTIPATION [None]
  - TOBACCO WITHDRAWAL SYMPTOMS [None]
  - BRUXISM [None]
  - FLATULENCE [None]
  - IRRITABILITY [None]
  - FEELING ABNORMAL [None]
